FAERS Safety Report 25828875 (Version 2)
Quarter: 2025Q4

REPORT INFORMATION
  Report Type: Spontaneous
  Country: US (occurrence: US)
  Receive Date: 20250922
  Receipt Date: 20251115
  Transmission Date: 20260117
  Serious: No
  Sender: ROCHE
  Company Number: US-ROCHE-10000281442

PATIENT
  Age: 66 Year
  Sex: Male

DRUGS (1)
  1. ALECENSA [Suspect]
     Active Substance: ALECTINIB HYDROCHLORIDE
     Indication: Non-small cell lung cancer
     Dosage: 600MG IN THE MORNING; 600MG IN EVENING
     Route: 048
     Dates: start: 202111

REACTIONS (2)
  - Ill-defined disorder [Recovering/Resolving]
  - Stomatitis [Not Recovered/Not Resolved]
